FAERS Safety Report 5711190-2 (Version None)
Quarter: 2008Q2

REPORT INFORMATION
  Report Type: 
  Country: None (occurrence: None)
  Receive Date: 20080421
  Receipt Date: 20080414
  Transmission Date: 20081010
  Serious: Yes (Hospitalization, Other)
  Sender: FDA-Public Use
  Company Number: ES-AVENTIS-200811634EU

PATIENT
  Age: 91 Year
  Sex: Female

DRUGS (4)
  1. SEGURIL                            /00032601/ [Suspect]
     Route: 048
     Dates: start: 20070701, end: 20070815
  2. PROPRANOLOL [Suspect]
     Route: 048
     Dates: start: 20070701
  3. ALDACTONE [Suspect]
     Route: 048
     Dates: start: 20070701, end: 20070815
  4. OMEPRAZOLE [Concomitant]
     Route: 048

REACTIONS (2)
  - DRUG INTERACTION [None]
  - RENAL FAILURE ACUTE [None]
